FAERS Safety Report 7762271-3 (Version None)
Quarter: 2011Q3

REPORT INFORMATION
  Report Type: 
  Country: None (occurrence: None)
  Receive Date: 20110919
  Receipt Date: 20110919
  Transmission Date: 20111222
  Serious: Yes (Other)
  Sender: FDA-Public Use
  Company Number: None

PATIENT
  Sex: Female

DRUGS (1)
  1. SIMPONI [Suspect]
     Indication: PSORIATIC ARTHROPATHY
     Dosage: 50MG MONTHLY SUB-Q
     Route: 058
     Dates: start: 20100519, end: 20110915

REACTIONS (3)
  - HEADACHE [None]
  - LETHARGY [None]
  - CONFUSIONAL STATE [None]
